FAERS Safety Report 12922965 (Version 3)
Quarter: 2017Q1

REPORT INFORMATION
  Report Type: Spontaneous
  Country: HR (occurrence: HR)
  Receive Date: 20161109
  Receipt Date: 20170112
  Transmission Date: 20170428
  Serious: Yes (Life-Threatening, Hospitalization, Other)
  Sender: FDA-Public Use
  Company Number: HR-PFIZER INC-2016517391

PATIENT
  Age: 61 Year
  Sex: Female
  Weight: 88 kg

DRUGS (18)
  1. EUTHYROX [Suspect]
     Active Substance: LEVOTHYROXINE SODIUM
     Indication: HYPOTHYROIDISM
     Dosage: 100 MG, UNK
     Route: 048
  2. LORISTA [Suspect]
     Active Substance: LOSARTAN POTASSIUM
     Indication: HYPERTENSION
     Dosage: UNK
     Route: 048
     Dates: start: 2015
  3. NEOFEN FORTE /00109201/ [Suspect]
     Active Substance: IBUPROFEN
     Indication: PYREXIA
  4. CONTROLOC [Suspect]
     Active Substance: PANTOPRAZOLE SODIUM
     Indication: DYSPEPSIA
     Dosage: 40 MG, UNK
     Route: 048
     Dates: start: 201512
  5. CONCOR COR [Suspect]
     Active Substance: BISOPROLOL FUMARATE
     Indication: ATRIAL FIBRILLATION
     Dosage: 5 MG,
     Route: 048
  6. SEROQUEL XR [Suspect]
     Active Substance: QUETIAPINE FUMARATE
     Dosage: 300 MG, UNK
     Route: 065
  7. ZONADIN [Suspect]
     Active Substance: ZOLPIDEM TARTRATE
     Indication: INSOMNIA
     Dosage: UNK
     Route: 048
     Dates: start: 2012
  8. VELAFAX [Suspect]
     Active Substance: VENLAFAXINE HYDROCHLORIDE
     Indication: MAJOR DEPRESSION
     Dosage: 75 MG, QD
     Route: 048
  9. NEOFEN FORTE /00109201/ [Suspect]
     Active Substance: IBUPROFEN
     Indication: NASOPHARYNGITIS
  10. LORISTA H [Suspect]
     Active Substance: HYDROCHLOROTHIAZIDE\LOSARTAN POTASSIUM
     Indication: HYPERTENSION
     Dosage: UNK
     Route: 048
     Dates: start: 2015
  11. CERSON (NITRAZEPAM) [Suspect]
     Active Substance: NITRAZEPAM
     Indication: MAJOR DEPRESSION
     Dosage: UNK
     Route: 048
  12. SILYMARIN [Suspect]
     Active Substance: MILK THISTLE
     Indication: DRUG-INDUCED LIVER INJURY
     Dosage: UNK
     Route: 048
  13. CONCOR COR [Suspect]
     Active Substance: BISOPROLOL FUMARATE
     Indication: PALPITATIONS
     Dosage: UNK
     Route: 048
  14. LORSILAN [Suspect]
     Active Substance: LORAZEPAM
     Indication: DEPRESSION
     Dosage: 2.5 MG, UNK
     Route: 048
     Dates: start: 2012
  15. SEROQUEL XR [Suspect]
     Active Substance: QUETIAPINE FUMARATE
     Indication: MAJOR DEPRESSION
     Dosage: 400 MG, UNK
     Route: 048
     Dates: start: 2012
  16. VELAFAX [Suspect]
     Active Substance: VENLAFAXINE HYDROCHLORIDE
     Dosage: 37.5 MG, UNK
     Route: 065
  17. NEOFEN FORTE /00109201/ [Suspect]
     Active Substance: IBUPROFEN
     Indication: PAIN
     Dosage: 400 MG, UNK
     Route: 048
  18. DICLAC DUO [Suspect]
     Active Substance: DICLOFENAC SODIUM
     Indication: OSTEOARTHRITIS
     Dosage: UNK
     Route: 048

REACTIONS (6)
  - C-reactive protein increased [Recovered/Resolved]
  - Small intestinal perforation [Recovered/Resolved]
  - Peritonitis [Recovered/Resolved]
  - Ovarian disorder [Recovered/Resolved]
  - Abdominal pain [Recovered/Resolved]
  - Appendicitis [Recovered/Resolved]

NARRATIVE: CASE EVENT DATE: 20161014
